FAERS Safety Report 8361231-1 (Version None)
Quarter: 2012Q2

REPORT INFORMATION
  Report Type: 
  Country: None (occurrence: None)
  Receive Date: 20120515
  Receipt Date: 20110719
  Transmission Date: 20120825
  Serious: No
  Sender: FDA-Public Use
  Company Number: US-ALEXION-A201101094

PATIENT
  Sex: Male

DRUGS (5)
  1. MULTI-VITAMIN [Concomitant]
     Dosage: UNK, QD
     Route: 048
  2. FOLIC ACID [Concomitant]
     Dosage: UNK, QD
     Route: 048
  3. NEUPOGEN [Concomitant]
     Dosage: UNK, QW, INJECTION
  4. SOLIRIS [Suspect]
     Indication: PAROXYSMAL NOCTURNAL HAEMOGLOBINURIA
     Dosage: 900 MG, Q2W
     Route: 042
  5. SOLIRIS [Suspect]
     Dosage: 1200 MG, UNK
     Route: 042
     Dates: start: 20110809

REACTIONS (7)
  - DYSPNOEA [None]
  - DYSPHAGIA [None]
  - FEELING ABNORMAL [None]
  - MUSCULOSKELETAL PAIN [None]
  - DISEASE PROGRESSION [None]
  - HAEMOLYSIS [None]
  - CHROMATURIA [None]
